FAERS Safety Report 8977804 (Version 1)
Quarter: 2012Q4

REPORT INFORMATION
  Report Type: 
  Country: US (occurrence: US)
  Receive Date: 20121220
  Receipt Date: 20121220
  Transmission Date: 20130627
  Serious: No
  Sender: FDA-Public Use
  Company Number: US-ASTRAZENECA-2012SE92907

PATIENT
  Age: 52 Year
  Sex: Female
  Weight: 55.3 kg

DRUGS (8)
  1. CRESTOR [Suspect]
     Indication: BLOOD CHOLESTEROL INCREASED
     Route: 048
     Dates: start: 20121026, end: 20121105
  2. ZOFRAN [Concomitant]
     Indication: NAUSEA
  3. PROTONIX [Concomitant]
     Indication: GASTROOESOPHAGEAL REFLUX DISEASE
  4. ZANTAC [Concomitant]
     Indication: GASTROOESOPHAGEAL REFLUX DISEASE
  5. AMITIZA [Concomitant]
     Indication: IRRITABLE BOWEL SYNDROME
  6. DOLOBID [Concomitant]
     Indication: FIBROMYALGIA
  7. SAVALLA [Concomitant]
     Indication: FIBROMYALGIA
  8. VITAMIN D [Concomitant]
     Indication: OSTEOPENIA

REACTIONS (9)
  - Neck pain [Not Recovered/Not Resolved]
  - Oropharyngeal pain [Not Recovered/Not Resolved]
  - Musculoskeletal stiffness [Not Recovered/Not Resolved]
  - Abdominal pain [Not Recovered/Not Resolved]
  - Myopathy [Not Recovered/Not Resolved]
  - Nausea [Unknown]
  - Arthralgia [Not Recovered/Not Resolved]
  - Pain in extremity [Not Recovered/Not Resolved]
  - Intentional drug misuse [Unknown]
